FAERS Safety Report 20230051 (Version 2)
Quarter: 2022Q1

REPORT INFORMATION
  Report Type: Spontaneous
  Country: US (occurrence: US)
  Receive Date: 20211226
  Receipt Date: 20220114
  Transmission Date: 20220423
  Serious: No
  Sender: FDA-Public Use
  Company Number: US-SA-SAC20211222001200

PATIENT
  Age: 30 Year
  Sex: Male
  Weight: 79.37 kg

DRUGS (12)
  1. FABRAZYME [Suspect]
     Active Substance: AGALSIDASE BETA
     Indication: Gaucher^s disease
     Dosage: 80 MG, QOW
     Dates: start: 20090113
  2. FABRAZYME [Suspect]
     Active Substance: AGALSIDASE BETA
     Indication: Lipidosis
  3. MUCINEX [Concomitant]
     Active Substance: GUAIFENESIN
     Dosage: UNK
  4. ZINC [Concomitant]
     Active Substance: ZINC
     Dosage: UNK
  5. LYSINE [Concomitant]
     Active Substance: LYSINE
     Dosage: UNK
  6. VITAMIN D3 [Concomitant]
     Active Substance: CHOLECALCIFEROL
     Dosage: UNK
  7. SODIUM CHLORIDE [Concomitant]
     Active Substance: SODIUM CHLORIDE
     Dosage: UNK
  8. STERILE WATER [Concomitant]
     Active Substance: WATER
     Dosage: UNK
  9. EPINEPHRINE [Concomitant]
     Active Substance: EPINEPHRINE
     Dosage: UNK
  10. ASPIRIN [Concomitant]
     Active Substance: ASPIRIN
     Dosage: UNK
  11. CARBAMAZEPINE [Concomitant]
     Active Substance: CARBAMAZEPINE
  12. ACETAMINOPHEN [Concomitant]
     Active Substance: ACETAMINOPHEN

REACTIONS (4)
  - Suspected COVID-19 [Unknown]
  - Cough [Unknown]
  - Rash [Unknown]
  - Product use in unapproved indication [Unknown]

NARRATIVE: CASE EVENT DATE: 20090113
